FAERS Safety Report 24186369 (Version 3)
Quarter: 2024Q3

REPORT INFORMATION
  Report Type: Spontaneous
  Country: US (occurrence: US)
  Receive Date: 20240808
  Receipt Date: 20240830
  Transmission Date: 20241017
  Serious: Yes (Other)
  Sender: ABBVIE
  Company Number: US-ABBVIE-5870324

PATIENT
  Sex: Female

DRUGS (2)
  1. LATISSE [Suspect]
     Active Substance: BIMATOPROST
     Indication: Hypotrichosis
     Dosage: FORM STRENGTH: 0.3 MILLIGRAM/MILLILITERS?START DATE: AT LEAST 15 YEARS AGO?STOP DATE: THREE YEARS...
     Route: 061
     Dates: start: 2009, end: 2021
  2. LATISSE [Suspect]
     Active Substance: BIMATOPROST
     Dosage: FORM STRENGTH: 0.3 MILLIGRAM/MILLILITERS
     Route: 061
     Dates: start: 2023, end: 2023

REACTIONS (9)
  - Dermatochalasis [Not Recovered/Not Resolved]
  - COVID-19 [Not Recovered/Not Resolved]
  - Pruritus [Not Recovered/Not Resolved]
  - Drug ineffective [Not Recovered/Not Resolved]
  - Eyelash changes [Unknown]
  - Dry eye [Not Recovered/Not Resolved]
  - Macular degeneration [Not Recovered/Not Resolved]
  - Ocular hyperaemia [Not Recovered/Not Resolved]
  - Madarosis [Unknown]

NARRATIVE: CASE EVENT DATE: 20230101
